FAERS Safety Report 7387617-X (Version None)
Quarter: 2011Q1

REPORT INFORMATION
  Report Type: 
  Country: None (occurrence: None)
  Receive Date: 20110331
  Receipt Date: 20110121
  Transmission Date: 20110831
  Serious: Yes (Other)
  Sender: FDA-Public Use
  Company Number: NL-PFIZER INC-2011016092

PATIENT
  Age: 36 Year
  Sex: Female

DRUGS (5)
  1. SALAZOPYRINE [Suspect]
     Indication: POLYARTHRITIS
  2. PREDNISONE [Concomitant]
  3. FOSAMAX [Concomitant]
  4. SALAZOPYRINE [Suspect]
     Indication: PYODERMA GANGRENOSUM
     Dosage: 500 MG, UNK
  5. SALAZOPYRINE [Suspect]
     Indication: COLITIS

REACTIONS (4)
  - DRUG INEFFECTIVE [None]
  - PYODERMA GANGRENOSUM [None]
  - POLYARTHRITIS [None]
  - COLITIS [None]
